FAERS Safety Report 8519118-7 (Version None)
Quarter: 2012Q3

REPORT INFORMATION
  Report Type: 
  Country: None (occurrence: None)
  Receive Date: 20120718
  Receipt Date: 20120523
  Transmission Date: 20120928
  Serious: No
  Sender: FDA-Public Use
  Company Number: US-009507513-1207USA005110

PATIENT

DRUGS (1)
  1. AFRIN [Suspect]
     Indication: NASAL DISORDER
     Dosage: UNK, UNKNOWN
     Route: 045

REACTIONS (1)
  - DRUG INEFFECTIVE [None]
